APPROVED DRUG PRODUCT: IBUPROFEN AND PSEUDOEPHEDRINE HYDROCHLORIDE
Active Ingredient: IBUPROFEN; PSEUDOEPHEDRINE HYDROCHLORIDE
Strength: 200MG;30MG
Dosage Form/Route: TABLET;ORAL
Application: A075588 | Product #001
Applicant: CONTRACT PHARMACAL CORP
Approved: Apr 8, 2002 | RLD: No | RS: No | Type: DISCN